FAERS Safety Report 4530505-4 (Version None)
Quarter: 2004Q4

REPORT INFORMATION
  Report Type: 
  Country: None (occurrence: None)
  Receive Date: 20041206
  Receipt Date: 20040909
  Transmission Date: 20050328
  Serious: No
  Sender: FDA-Public Use
  Company Number: USA040977719

PATIENT
  Sex: Female

DRUGS (6)
  1. CYMBALTA [Suspect]
     Indication: DEPRESSION
     Dosage: 60 MG/1 DAY
     Dates: start: 20040801
  2. KLONOPIN [Concomitant]
  3. LAMICTAL [Concomitant]
  4. WELLBUTRIN [Concomitant]
  5. RISPERDAL [Concomitant]
  6. ZOLOFT [Concomitant]

REACTIONS (1)
  - HYPERHIDROSIS [None]
